FAERS Safety Report 8747355 (Version 2)
Quarter: 2012Q4

REPORT INFORMATION
  Report Type: 
  Country: DE (occurrence: DE)
  Receive Date: 20120827
  Receipt Date: 20120904
  Transmission Date: 20130627
  Serious: Yes (Hospitalization)
  Sender: FDA-Public Use
  Company Number: DE-BRISTOL-MYERS SQUIBB COMPANY-16660193

PATIENT
  Age: 61 Year
  Sex: Male

DRUGS (13)
  1. ERBITUX SOLN FOR INF 5MG/ML [Suspect]
     Indication: TONGUE NEOPLASM MALIGNANT STAGE UNSPECIFIED
     Dosage: 1DF: 17-17Apr12:692mg, 24-24apr12:428mg, 02-02may12:415mg, 08-08may12: 420mg
     Route: 042
     Dates: start: 20120417, end: 20120508
  2. NOVALGIN [Concomitant]
     Dosage: Drops (40-40-40-40)
     Route: 048
  3. METOHEXAL [Concomitant]
     Route: 048
     Dates: start: 20120424
  4. SPIRONOLACTONE [Concomitant]
     Dosage: Strength:50mg
     Route: 048
     Dates: start: 20120424
  5. SIMVAHEXAL [Concomitant]
     Dosage: 0-0-1
     Route: 048
     Dates: start: 20120424
  6. VOLTAREN [Concomitant]
     Dosage: 1-0-1
     Route: 048
  7. FORTECORTIN [Concomitant]
     Indication: PREMEDICATION
  8. RANITIDINE [Concomitant]
     Indication: PREMEDICATION
  9. FENISTIL [Concomitant]
     Indication: PREMEDICATION
  10. DYNEXAN [Concomitant]
     Indication: ORAL CANDIDIASIS
     Dosage: Mouth gel
     Dates: start: 20120424
  11. LIDOCAINE [Concomitant]
     Indication: PAIN
     Dosage: Lidocaine MSL 2Percent
     Dates: start: 20120424
  12. TEPILTA [Concomitant]
     Dates: start: 20120424
  13. ACETYLSALICYLIC ACID [Concomitant]
     Indication: PAIN
     Dosage: 100
     Dates: start: 20120424

REACTIONS (4)
  - Dermatitis bullous [Recovered/Resolved with Sequelae]
  - Dermatitis [Recovered/Resolved with Sequelae]
  - Radiation skin injury [Recovered/Resolved with Sequelae]
  - Superinfection bacterial [Recovered/Resolved with Sequelae]
